FAERS Safety Report 6963640-1 (Version None)
Quarter: 2010Q3

REPORT INFORMATION
  Report Type: 
  Country: None (occurrence: None)
  Receive Date: 20100902
  Receipt Date: 20100824
  Transmission Date: 20110219
  Serious: Yes (Hospitalization)
  Sender: FDA-Public Use
  Company Number: US-ASTRAZENECA-2010SE39747

PATIENT
  Age: 79 Year
  Sex: Male

DRUGS (7)
  1. PRILOSEC [Suspect]
     Route: 048
     Dates: start: 19960101
  2. PRILOSEC [Suspect]
     Dosage: BID FOR 3 WEEKS
     Route: 048
     Dates: start: 19960101
  3. OMEPRAZOLE [Suspect]
  4. BLOOD PRESSURE MEDS [Concomitant]
  5. HEART RHYTHM MED [Concomitant]
  6. MED FOR URIC ACID [Concomitant]
  7. WARFARIN SODIUM [Concomitant]

REACTIONS (6)
  - ADVERSE EVENT [None]
  - DIARRHOEA [None]
  - DRUG DOSE OMISSION [None]
  - GASTROOESOPHAGEAL REFLUX DISEASE [None]
  - INTESTINAL OBSTRUCTION [None]
  - KNEE OPERATION [None]
